FAERS Safety Report 10029088 (Version 1)
Quarter: 2014Q1

REPORT INFORMATION
  Report Type: Spontaneous
  Country: US (occurrence: US)
  Receive Date: 20140321
  Receipt Date: 20140321
  Transmission Date: 20141002
  Serious: No
  Sender: FDA-Public Use
  Company Number: US-009507513-1403USA007696

PATIENT
  Sex: 0

DRUGS (1)
  1. ZOLINZA [Suspect]
     Route: 048

REACTIONS (1)
  - Blood creatinine increased [Unknown]
